FAERS Safety Report 12057473 (Version 1)
Quarter: 2016Q1

REPORT INFORMATION
  Report Type: Spontaneous
  Country: US (occurrence: US)
  Receive Date: 20160210
  Receipt Date: 20160210
  Transmission Date: 20160526
  Serious: No
  Sender: FDA-Public Use
  Company Number: US-TEVA-619733USA

PATIENT
  Age: 7 Year
  Sex: Female

DRUGS (1)
  1. DEXMETHYLPHENIDATE [Suspect]
     Active Substance: DEXMETHYLPHENIDATE HYDROCHLORIDE
     Indication: ATTENTION DEFICIT/HYPERACTIVITY DISORDER
     Dosage: 10 MILLIGRAM DAILY;
     Route: 065
     Dates: start: 20151214

REACTIONS (7)
  - Mood swings [Unknown]
  - Psychomotor hyperactivity [Unknown]
  - Product substitution issue [Unknown]
  - Hyperhidrosis [Unknown]
  - Crying [Unknown]
  - Feeling hot [Unknown]
  - Drug ineffective [Unknown]

NARRATIVE: CASE EVENT DATE: 20151214
